FAERS Safety Report 10551639 (Version 1)
Quarter: 2014Q4

REPORT INFORMATION
  Report Type: Spontaneous
  Country: IT (occurrence: IT)
  Receive Date: 20141029
  Receipt Date: 20141029
  Transmission Date: 20150529
  Serious: Yes (Other)
  Sender: FDA-Public Use
  Company Number: PHHY2014IT137965

PATIENT
  Age: 46 Year
  Sex: Male

DRUGS (6)
  1. TACROLIMUS. [Suspect]
     Active Substance: TACROLIMUS
     Indication: IMMUNOSUPPRESSION
  2. BASILIXIMAB [Suspect]
     Active Substance: BASILIXIMAB
     Indication: RENAL TRANSPLANT
     Route: 065
  3. BASILIXIMAB [Suspect]
     Active Substance: BASILIXIMAB
     Indication: IMMUNOSUPPRESSION
  4. MYCOPHENOLATE MOFETIL. [Suspect]
     Active Substance: MYCOPHENOLATE MOFETIL
     Indication: IMMUNOSUPPRESSION
  5. MYCOPHENOLATE MOFETIL. [Suspect]
     Active Substance: MYCOPHENOLATE MOFETIL
     Indication: RENAL TRANSPLANT
     Route: 065
  6. TACROLIMUS. [Suspect]
     Active Substance: TACROLIMUS
     Indication: RENAL TRANSPLANT
     Route: 065

REACTIONS (18)
  - Lymphocytosis [Recovered/Resolved]
  - Leukopenia [Recovered/Resolved]
  - Cytomegalovirus infection [Recovered/Resolved]
  - Arthralgia [Recovered/Resolved]
  - Rash [Recovered/Resolved]
  - Thrombosis [Recovered/Resolved]
  - Acute kidney injury [Recovered/Resolved]
  - Oedema [Recovered/Resolved]
  - Lymphocyte morphology abnormal [Recovered/Resolved]
  - Hyperviscosity syndrome [Recovered/Resolved]
  - Pain [Recovered/Resolved]
  - Oliguria [Recovered/Resolved]
  - Cryoglobulinaemia [Recovered/Resolved]
  - Hypercoagulation [Recovered/Resolved]
  - Abdominal pain upper [Recovered/Resolved]
  - Swelling [Recovered/Resolved]
  - Deep vein thrombosis [Recovered/Resolved]
  - Pyrexia [Recovered/Resolved]
